FAERS Safety Report 4281368-6 (Version None)
Quarter: 2004Q1

REPORT INFORMATION
  Report Type: 
  Country: None (occurrence: None)
  Receive Date: 20040129
  Receipt Date: 20031107
  Transmission Date: 20041129
  Serious: Yes (Hospitalization)
  Sender: FDA-Public Use
  Company Number: GB-BRISTOL-MYERS SQUIBB COMPANY-12431771

PATIENT
  Age: 80 Year
  Sex: Female

DRUGS (5)
  1. APROVEL TABS [Suspect]
     Route: 048
  2. GLICLAZIDE [Concomitant]
  3. METFORMIN HCL [Concomitant]
  4. ATENOLOL [Concomitant]
  5. CALCICHEW [Concomitant]

REACTIONS (1)
  - HYPONATRAEMIA [None]
